FAERS Safety Report 6395951-5 (Version None)
Quarter: 2009Q4

REPORT INFORMATION
  Report Type: 
  Country: None (occurrence: None)
  Receive Date: 20091007
  Receipt Date: 20090928
  Transmission Date: 20100525
  Serious: Yes (Hospitalization)
  Sender: FDA-Public Use
  Company Number: 2009US003228

PATIENT
  Age: 64 Year
  Sex: Male

DRUGS (7)
  1. ALEFACEPT (ALEFACEPT) [Suspect]
     Indication: RENAL TRANSPLANT
     Dosage: SEE IMAGE
     Route: 042
     Dates: start: 20090808, end: 20090808
  2. ALEFACEPT (ALEFACEPT) [Suspect]
     Indication: RENAL TRANSPLANT
     Dosage: SEE IMAGE
     Route: 042
     Dates: start: 20090811, end: 20090811
  3. ALEFACEPT (ALEFACEPT) [Suspect]
     Indication: RENAL TRANSPLANT
     Dosage: SEE IMAGE
     Route: 042
     Dates: start: 20090814, end: 20090814
  4. ALEFACEPT (ALEFACEPT) [Suspect]
     Indication: RENAL TRANSPLANT
     Dosage: SEE IMAGE
     Route: 042
     Dates: start: 20090831
  5. PROGRAF [Suspect]
     Indication: RENAL TRANSPLANT
     Dosage: UNK, UNK, ORAL
     Route: 048
     Dates: start: 20090809
  6. LOPRESSOR [Suspect]
     Indication: DRUG USE FOR UNKNOWN INDICATION
     Dosage: UNK, UNK, UNK
     Dates: start: 20090810
  7. INSULIN (INSULIN) [Concomitant]

REACTIONS (5)
  - ATRIAL FIBRILLATION [None]
  - ATRIAL FLUTTER [None]
  - BLOOD GLUCOSE INCREASED [None]
  - BRADYCARDIA [None]
  - SICK SINUS SYNDROME [None]
